FAERS Safety Report 7318903-7 (Version None)
Quarter: 2011Q1

REPORT INFORMATION
  Report Type: 
  Country: None (occurrence: None)
  Receive Date: 20110228
  Receipt Date: 20110218
  Transmission Date: 20110831
  Serious: Yes (Other)
  Sender: FDA-Public Use
  Company Number: GB-ELI_LILLY_AND_COMPANY-GB201102005443

PATIENT
  Sex: Female

DRUGS (2)
  1. HUMALOG [Suspect]
  2. HUMALOG MIX 75/25 [Suspect]

REACTIONS (3)
  - DRUG NAME CONFUSION [None]
  - WRONG DRUG ADMINISTERED [None]
  - LOSS OF CONSCIOUSNESS [None]
